FAERS Safety Report 22066975 (Version 3)
Quarter: 2023Q1

REPORT INFORMATION
  Report Type: Spontaneous
  Country: HR (occurrence: HR)
  Receive Date: 20230306
  Receipt Date: 20230321
  Transmission Date: 20230418
  Serious: Yes (Other)
  Sender: FDA-Public Use
  Company Number: None

PATIENT
  Age: 28 Year
  Sex: Female
  Weight: 80 kg

DRUGS (3)
  1. CONTROLOC [Suspect]
     Active Substance: PANTOPRAZOLE SODIUM
     Dosage: 320 MILLIGRAM, QD
     Route: 048
     Dates: start: 20230128, end: 20230128
  2. PREGABALIN [Suspect]
     Active Substance: PREGABALIN
     Dosage: 1050 MILLIGRAM, QD
     Route: 048
     Dates: start: 20230128, end: 20230128
  3. NORMABEL [Suspect]
     Active Substance: DIAZEPAM
     Dosage: 280 MILLIGRAM, QD
     Route: 048
     Dates: start: 20230128, end: 20230128

REACTIONS (3)
  - Intentional overdose [Unknown]
  - Suicide attempt [Unknown]
  - Somnolence [Unknown]

NARRATIVE: CASE EVENT DATE: 20230128
